FAERS Safety Report 6127886-7 (Version None)
Quarter: 2009Q1

REPORT INFORMATION
  Report Type: 
  Country: None (occurrence: None)
  Receive Date: 20090320
  Receipt Date: 20090320
  Transmission Date: 20090719
  Serious: No
  Sender: FDA-Public Use
  Company Number: None

PATIENT
  Sex: Female
  Weight: 63.5036 kg

DRUGS (6)
  1. VESICARE [Suspect]
     Indication: HYPERTONIC BLADDER
     Dosage: 5 MG ONCE A DAY BY MOUTH
     Dates: start: 20081110, end: 20090127
  2. DEPAKOTE [Concomitant]
  3. ESKALITH [Concomitant]
  4. SYNTHROID [Concomitant]
  5. ZOLOFT [Concomitant]
  6. ENJUVIA [Concomitant]

REACTIONS (3)
  - DISCOMFORT [None]
  - GLOSSODYNIA [None]
  - ORAL PAIN [None]
